FAERS Safety Report 10286970 (Version 1)
Quarter: 2014Q3

REPORT INFORMATION
  Report Type: Spontaneous
  Country: BR (occurrence: BR)
  Receive Date: 20140709
  Receipt Date: 20140709
  Transmission Date: 20150326
  Serious: Yes (Other)
  Sender: FDA-Public Use
  Company Number: BR-PFIZER INC-2014186586

PATIENT
  Age: 48 Year
  Sex: Male
  Weight: 91 kg

DRUGS (2)
  1. MILGAMMA [Concomitant]
     Active Substance: VITAMIN B
     Indication: INFLAMMATION
     Dosage: ONE TABLET (150 MG), 3X/DAY
     Dates: start: 20140622
  2. LYRICA [Suspect]
     Active Substance: PREGABALIN
     Indication: FIBROMYALGIA
     Dosage: ONE CAPSULE (75 MG), 2X/DAY
     Route: 048
     Dates: start: 201406

REACTIONS (1)
  - Abasia [Recovering/Resolving]

NARRATIVE: CASE EVENT DATE: 201406
